FAERS Safety Report 6005401-6 (Version None)
Quarter: 2008Q4

REPORT INFORMATION
  Report Type: 
  Country: None (occurrence: None)
  Receive Date: 20081216
  Receipt Date: 20081211
  Transmission Date: 20090506
  Serious: Yes (Other)
  Sender: FDA-Public Use
  Company Number: DE-BRISTOL-MYERS SQUIBB COMPANY-14352066

PATIENT
  Age: 51 Year
  Sex: Female

DRUGS (4)
  1. BARACLUDE ORAL SOLN [Suspect]
     Indication: HEPATITIS B
     Dosage: DOSE REDUCED TO 0.5MG/D ON 04DEC08
     Route: 048
     Dates: start: 20061101
  2. TENOFOVIR [Suspect]
     Dates: start: 20071101
  3. SANDIMMUNE [Concomitant]
     Dosage: CICLOSPORIN;50-0-60
     Route: 048
     Dates: start: 19910101
  4. LASIX [Concomitant]
     Dosage: 1 DOSAGE FORM = 40 (UNITS NOT SPECIFIED)
     Route: 048
     Dates: start: 19910101

REACTIONS (1)
  - RENAL FAILURE [None]
